FAERS Safety Report 6137222-8 (Version None)
Quarter: 2009Q1

REPORT INFORMATION
  Report Type: 
  Country: None (occurrence: None)
  Receive Date: 20090330
  Receipt Date: 20090320
  Transmission Date: 20090719
  Serious: Yes (Other)
  Sender: FDA-Public Use
  Company Number: PHEH2008US11142

PATIENT
  Sex: Female

DRUGS (3)
  1. ZOMETA [Suspect]
     Indication: METASTASES TO BONE
     Dosage: 4MG, Q28D
     Route: 042
     Dates: start: 20050324, end: 20051201
  2. ZOMETA [Suspect]
     Dosage: 4MG, Q8WEEKS
     Route: 042
     Dates: start: 20060101, end: 20060316
  3. FOSAMAX [Concomitant]
     Indication: OSTEOPENIA
     Dosage: 70 MG, QW

REACTIONS (13)
  - BONE DISORDER [None]
  - BONE EROSION [None]
  - DEBRIDEMENT [None]
  - EATING DISORDER [None]
  - GINGIVAL EROSION [None]
  - INFECTION [None]
  - INSOMNIA [None]
  - ORAL DISORDER [None]
  - ORAL PAIN [None]
  - OSTEONECROSIS [None]
  - PAIN [None]
  - SOFT TISSUE INJURY [None]
  - TOOTH LOSS [None]
